FAERS Safety Report 24529898 (Version 1)
Quarter: 2024Q4

REPORT INFORMATION
  Report Type: Spontaneous
  Country: FR (occurrence: FR)
  Receive Date: 20241021
  Receipt Date: 20241021
  Transmission Date: 20250115
  Serious: Yes (Other)
  Sender: SANOFI AVENTIS
  Company Number: None

PATIENT
  Age: 49 Year
  Sex: Male
  Weight: 78 kg

DRUGS (1)
  1. ISONIAZID\RIFAMPIN [Suspect]
     Active Substance: ISONIAZID\RIFAMPIN
     Indication: Tuberculosis
     Dosage: 1 DF
     Route: 048
     Dates: start: 20230504, end: 20230525

REACTIONS (1)
  - Type IV hypersensitivity reaction [Recovering/Resolving]

NARRATIVE: CASE EVENT DATE: 20230525
